FAERS Safety Report 19661208 (Version 1)
Quarter: 2021Q3

REPORT INFORMATION
  Report Type: Spontaneous
  Country: GB (occurrence: GB)
  Receive Date: 20210805
  Receipt Date: 20210805
  Transmission Date: 20211014
  Serious: Yes (Other)
  Sender: FDA-Public Use
  Company Number: GB-PFIZER INC-202100942865

PATIENT
  Age: 50 Year
  Sex: Female
  Weight: 84.81 kg

DRUGS (3)
  1. DOXYCYCLINE MONOHYDRATE [Suspect]
     Active Substance: DOXYCYCLINE
     Dosage: 8*100MG, 2 FIRST DAY, THEN 1
     Route: 048
     Dates: start: 20210723, end: 20210723
  2. OMEPRAZOL [Concomitant]
     Active Substance: OMEPRAZOLE
     Indication: ILL-DEFINED DISORDER
     Dosage: UNK
  3. DOXYCYCLINE MONOHYDRATE [Suspect]
     Active Substance: DOXYCYCLINE
     Indication: LOWER RESPIRATORY TRACT INFECTION
     Dosage: 8*100MG, 2 FIRST DAY, THEN 1 DAILY
     Route: 048
     Dates: start: 20210722, end: 20210722

REACTIONS (2)
  - Nausea [Unknown]
  - Illness [Not Recovered/Not Resolved]

NARRATIVE: CASE EVENT DATE: 20210723
